FAERS Safety Report 17512433 (Version 1)
Quarter: 2020Q1

REPORT INFORMATION
  Report Type: Spontaneous
  Country: DK (occurrence: DK)
  Receive Date: 20200306
  Receipt Date: 20200306
  Transmission Date: 20200409
  Serious: Yes (Hospitalization)
  Sender: FDA-Public Use
  Company Number: DK-MYLANLABS-2020M1023526

PATIENT
  Age: 20 Year
  Sex: Female
  Weight: 64 kg

DRUGS (1)
  1. QUETIAPINE. [Suspect]
     Active Substance: QUETIAPINE
     Indication: INSOMNIA
     Dosage: STYRKE: UKENDT. DOSIS: VARIERENDE.
     Route: 048
     Dates: start: 2007, end: 2020

REACTIONS (9)
  - Fatigue [Recovering/Resolving]
  - Thirst [Recovered/Resolved]
  - Memory impairment [Recovering/Resolving]
  - Apathy [Recovering/Resolving]
  - Chest pain [Recovered/Resolved]
  - Disturbance in attention [Recovering/Resolving]
  - Weight increased [Recovering/Resolving]
  - Increased appetite [Not Recovered/Not Resolved]
  - Palpitations [Recovered/Resolved]

NARRATIVE: CASE EVENT DATE: 2012
